FAERS Safety Report 18925704 (Version 1)
Quarter: 2021Q1

REPORT INFORMATION
  Report Type: Spontaneous
  Country: FR (occurrence: FR)
  Receive Date: 20210223
  Receipt Date: 20210223
  Transmission Date: 20210420
  Serious: Yes (Life-Threatening, Hospitalization, Other)
  Sender: FDA-Public Use
  Company Number: FR-AUROBINDO-AUR-APL-2021-007025

PATIENT
  Age: 3 Year
  Sex: Male
  Weight: 17 kg

DRUGS (1)
  1. LAMOTRIGINE. [Suspect]
     Active Substance: LAMOTRIGINE
     Indication: EPILEPSY
     Dosage: 250 MILLIGRAM, ONCE A DAY
     Route: 048
     Dates: start: 20210203, end: 20210203

REACTIONS (3)
  - Myoclonus [Not Recovered/Not Resolved]
  - Coma [Recovered/Resolved]
  - Wrong dose [Recovered/Resolved]

NARRATIVE: CASE EVENT DATE: 20210203
